FAERS Safety Report 14365186 (Version 1)
Quarter: 2018Q1

REPORT INFORMATION
  Report Type: Report from Study
  Country: US (occurrence: US)
  Receive Date: 20180108
  Receipt Date: 20180108
  Transmission Date: 20180509
  Serious: Yes (Hospitalization)
  Sender: FDA-Public Use
  Company Number: US-GILEAD-2018-0314063

PATIENT
  Age: 47 Year
  Sex: Female

DRUGS (1)
  1. AZTREONAM LYSINE [Suspect]
     Active Substance: AZTREONAM LYSINE
     Indication: CYSTIC FIBROSIS
     Dosage: 75MG INHALED 3 TIMES DAILY EVERY OTHER MONTH
     Route: 055
     Dates: start: 20160510

REACTIONS (1)
  - Antibiotic therapy [Not Recovered/Not Resolved]
